FAERS Safety Report 19821009 (Version 1)
Quarter: 2021Q3

REPORT INFORMATION
  Report Type: Spontaneous
  Country: US (occurrence: US)
  Receive Date: 20210909
  Receipt Date: 20210909
  Transmission Date: 20211014
  Serious: No
  Sender: FDA-Public Use
  Company Number: None

PATIENT
  Sex: Female

DRUGS (1)
  1. CAPECITABINE 500MG NOVADOZ PHARMACEUTICALS [Suspect]
     Active Substance: CAPECITABINE
     Indication: BILE DUCT CANCER
     Dosage: 500MGTAKE 3 TABLETS BY MOUTH TWICE A DAY FOR 14 DAYS ON, THEN 7 DAYS OFF
     Route: 048
     Dates: start: 20210817

REACTIONS (3)
  - Diarrhoea [None]
  - Oral mucosal blistering [None]
  - Blister [None]
